FAERS Safety Report 11152331 (Version 2)
Quarter: 2015Q2

REPORT INFORMATION
  Report Type: Spontaneous
  Country: FR (occurrence: FR)
  Receive Date: 20150601
  Receipt Date: 20150608
  Transmission Date: 20150821
  Serious: Yes (Disabling)
  Sender: FDA-Public Use
  Company Number: FR-IPSEN BIOPHARMACEUTICALS, INC.-2015-5211

PATIENT
  Age: 66 Year
  Sex: Male

DRUGS (4)
  1. DYSPORT 500 UNITES SPEYWOOD [Suspect]
     Active Substance: ABOBOTULINUMTOXINA
     Indication: DYSTONIA
     Dosage: 1000 UNITS
     Route: 030
     Dates: start: 20150311, end: 20150311
  2. SIFROL [Concomitant]
     Active Substance: PRAMIPEXOLE
     Indication: PRODUCT USED FOR UNKNOWN INDICATION
     Dosage: NOT REPORTED
     Route: 065
  3. MODOPAR [Concomitant]
     Active Substance: BENSERAZIDE HYDROCHLORIDE\LEVODOPA
     Indication: PRODUCT USED FOR UNKNOWN INDICATION
     Dosage: NOT REPORTED
     Route: 065
  4. AZILECT [Concomitant]
     Active Substance: RASAGILINE MESYLATE
     Indication: PRODUCT USED FOR UNKNOWN INDICATION
     Dosage: NOT REPORTED
     Route: 065
     Dates: end: 20150327

REACTIONS (1)
  - Muscular weakness [Unknown]

NARRATIVE: CASE EVENT DATE: 20150318
